FAERS Safety Report 7313152-0 (Version None)
Quarter: 2011Q1

REPORT INFORMATION
  Report Type: 
  Country: None (occurrence: None)
  Receive Date: 20110215
  Receipt Date: 20110215
  Transmission Date: 20110831
  Serious: Yes (Life-Threatening)
  Sender: FDA-Public Use
  Company Number: None

PATIENT
  Age: 70 Year
  Sex: Female
  Weight: 76.2043 kg

DRUGS (1)
  1. DABIGATRAN 150 MG [Suspect]
     Indication: ATRIAL FIBRILLATION
     Dosage: 150 BID PO
     Route: 048
     Dates: start: 20101119, end: 20110120

REACTIONS (1)
  - CONTUSION [None]
